FAERS Safety Report 7960270-X (Version None)
Quarter: 2011Q4

REPORT INFORMATION
  Report Type: 
  Country: None (occurrence: None)
  Receive Date: 20111206
  Receipt Date: 20111204
  Transmission Date: 20120403
  Serious: No
  Sender: FDA-Public Use
  Company Number: US-ACTELION-A-US2011-56531

PATIENT

DRUGS (2)
  1. TRACLEER [Suspect]
     Indication: PULMONARY ARTERIAL HYPERTENSION
     Dosage: UNK
     Route: 048
     Dates: start: 20110627
  2. ADCIRCA [Concomitant]

REACTIONS (2)
  - ROAD TRAFFIC ACCIDENT [None]
  - NECK INJURY [None]
